FAERS Safety Report 5486000-1 (Version None)
Quarter: 2007Q4

REPORT INFORMATION
  Report Type: 
  Country: None (occurrence: None)
  Receive Date: 20071012
  Receipt Date: 20070928
  Transmission Date: 20080405
  Serious: Yes (Other)
  Sender: FDA-Public Use
  Company Number: MPS1-10756

PATIENT
  Age: 27 Year
  Sex: Female

DRUGS (1)
  1. ALDURAZYME [Suspect]
     Indication: MUCOPOLYSACCHARIDOSIS I
     Dosage: 0.58 MG/KG QWK IV
     Route: 042
     Dates: start: 20040128

REACTIONS (4)
  - CHEST DISCOMFORT [None]
  - HEART RATE DECREASED [None]
  - INCREASED APPETITE [None]
  - TACHYPNOEA [None]
